FAERS Safety Report 7040010-1 (Version None)
Quarter: 2010Q4

REPORT INFORMATION
  Report Type: 
  Country: None (occurrence: None)
  Receive Date: 20101012
  Receipt Date: 20101005
  Transmission Date: 20110411
  Serious: Yes (Death, Hospitalization)
  Sender: FDA-Public Use
  Company Number: US-AMGEN-KDL444238

PATIENT
  Sex: Male
  Weight: 63.6 kg

DRUGS (2)
  1. PROCRIT [Suspect]
     Indication: ANAEMIA
     Route: 058
     Dates: start: 20000101, end: 20100615
  2. UNSPECIFIED MEDICATION [Concomitant]
     Dates: end: 20100615

REACTIONS (2)
  - FALL [None]
  - PNEUMONIA [None]
